FAERS Safety Report 23854304 (Version 1)
Quarter: 2024Q2

REPORT INFORMATION
  Report Type: Spontaneous
  Country: US (occurrence: None)
  Receive Date: 20240514
  Receipt Date: 20240514
  Transmission Date: 20240716
  Serious: Yes (Hospitalization)
  Sender: FDA-Public Use
  Company Number: None

PATIENT
  Age: 63 Year
  Sex: Female

DRUGS (1)
  1. LENALIDOMIDE [Suspect]
     Active Substance: LENALIDOMIDE
     Indication: Plasma cell myeloma
     Dosage: OTHER FREQUENCY : D 7 DAYS / OFF 7 D;?
     Route: 048
     Dates: start: 202309

REACTIONS (3)
  - Pneumonia [None]
  - Decreased appetite [None]
  - Insomnia [None]

NARRATIVE: CASE EVENT DATE: 20240201
